FAERS Safety Report 13696571 (Version 1)
Quarter: 2017Q2

REPORT INFORMATION
  Report Type: Spontaneous
  Country: US (occurrence: US)
  Receive Date: 20170628
  Receipt Date: 20170628
  Transmission Date: 20170830
  Serious: Yes (Other)
  Sender: FDA-Public Use
  Company Number: PHEH2017US019152

PATIENT

DRUGS (1)
  1. GILENYA [Suspect]
     Active Substance: FINGOLIMOD HYDROCHLORIDE
     Indication: PRODUCT USED FOR UNKNOWN INDICATION
     Route: 065

REACTIONS (6)
  - Tooth fracture [Unknown]
  - Multiple sclerosis [Unknown]
  - Gingival erosion [Unknown]
  - Salivary hypersecretion [Unknown]
  - Hypoaesthesia oral [Unknown]
  - Thirst [Unknown]
